FAERS Safety Report 8513587-4 (Version None)
Quarter: 2012Q3

REPORT INFORMATION
  Report Type: 
  Country: None (occurrence: None)
  Receive Date: 20120717
  Receipt Date: 20120712
  Transmission Date: 20120928
  Serious: No
  Sender: FDA-Public Use
  Company Number: US-PFIZER INC-2012167453

PATIENT
  Sex: Male
  Weight: 85 kg

DRUGS (2)
  1. PRISTIQ [Suspect]
     Indication: DEPRESSION
     Dosage: UNK, 1X/DAY
     Route: 048
     Dates: start: 20120601, end: 20120708
  2. TRAZODONE [Concomitant]
     Dosage: HALF TABLET

REACTIONS (3)
  - DIARRHOEA [None]
  - DIZZINESS [None]
  - INSOMNIA [None]
